FAERS Safety Report 23130789 (Version 1)
Quarter: 2023Q4

REPORT INFORMATION
  Report Type: Report from Study
  Country: CA (occurrence: CA)
  Receive Date: 20231031
  Receipt Date: 20231031
  Transmission Date: 20240110
  Serious: Yes (Other)
  Sender: FDA-Public Use
  Company Number: CA-ABBVIE-5465770

PATIENT
  Sex: Male

DRUGS (1)
  1. HUMIRA [Suspect]
     Active Substance: ADALIMUMAB
     Indication: Crohn^s disease
     Dosage: FORM STRENGTH: 40MG
     Route: 058
     Dates: start: 20210106, end: 2023

REACTIONS (5)
  - Cyst [Unknown]
  - Infection [Unknown]
  - Drug hypersensitivity [Unknown]
  - Anal fissure [Unknown]
  - Unevaluable event [Unknown]
